FAERS Safety Report 16578786 (Version 3)
Quarter: 2019Q3

REPORT INFORMATION
  Report Type: Report from Study
  Country: US (occurrence: US)
  Receive Date: 20190716
  Receipt Date: 20190906
  Transmission Date: 20191004
  Serious: Yes (Other)
  Sender: FDA-Public Use
  Company Number: US-ROCHE-2351050

PATIENT
  Age: 62 Year
  Sex: Female
  Weight: 60.84 kg

DRUGS (14)
  1. OCREVUS [Suspect]
     Active Substance: OCRELIZUMAB
     Indication: MULTIPLE SCLEROSIS
     Dosage: HALF DOSE ;ONGOING: UNKNOWN
     Route: 065
     Dates: start: 20190131
  2. TURMERIC [CURCUMA LONGA] [Concomitant]
     Dosage: ONGOING:YES
     Route: 065
  3. LIPITOR [Concomitant]
     Active Substance: ATORVASTATIN CALCIUM
     Indication: MULTIPLE SCLEROSIS
     Route: 065
  4. NYSTATIN. [Concomitant]
     Active Substance: NYSTATIN
     Indication: FUNGAL INFECTION
     Dosage: ONGOING:YES
     Route: 065
     Dates: start: 20190624
  5. BIOTIN [Concomitant]
     Active Substance: BIOTIN
     Dosage: ONGOING:YES
     Route: 065
  6. L-ARGININE [ARGININE] [Concomitant]
     Dosage: ONGOING:YES
     Route: 065
  7. FISH OIL [Concomitant]
     Active Substance: FISH OIL
     Dosage: ONGOING:YES
     Route: 065
  8. RESVERATROL [Concomitant]
     Active Substance: DIETARY SUPPLEMENT\RESVERATROL
     Dosage: 50-100MG ;ONGOING: YES
     Route: 065
  9. COD LIVER OIL [Concomitant]
     Active Substance: COD LIVER OIL
     Route: 065
  10. BETASERON [Concomitant]
     Active Substance: INTERFERON BETA-1B
  11. OCREVUS [Suspect]
     Active Substance: OCRELIZUMAB
     Route: 065
     Dates: start: 20190214
  12. PROPANOLOL [PROPRANOLOL] [Concomitant]
     Active Substance: PROPRANOLOL HYDROCHLORIDE
     Indication: TACHYCARDIA
     Dosage: ONGOING: YES
     Route: 065
  13. OCREVUS [Suspect]
     Active Substance: OCRELIZUMAB
     Route: 065
     Dates: start: 20190815
  14. MUPIROCIN. [Concomitant]
     Active Substance: MUPIROCIN
     Dosage: ONGOING:YES
     Route: 065
     Dates: start: 20190624

REACTIONS (3)
  - Dry eye [Unknown]
  - Lip infection [Recovered/Resolved]
  - Eye infection [Recovered/Resolved]

NARRATIVE: CASE EVENT DATE: 201904
